FAERS Safety Report 6382473-0 (Version None)
Quarter: 2009Q3

REPORT INFORMATION
  Report Type: 
  Country: None (occurrence: None)
  Receive Date: 20090924
  Receipt Date: 20081030
  Transmission Date: 20100115
  Serious: Yes (Life-Threatening, Hospitalization, Disabling)
  Sender: FDA-Public Use
  Company Number: WAES 0810USA05348

PATIENT
  Age: 54 Year
  Sex: Female
  Weight: 99.7913 kg

DRUGS (1)
  1. VYTORIN [Suspect]
     Indication: HYPERCHOLESTEROLAEMIA
     Dosage: 10-40 MG/DAILY/PO
     Route: 048

REACTIONS (4)
  - BLOOD MAGNESIUM DECREASED [None]
  - BLOOD POTASSIUM DECREASED [None]
  - RHABDOMYOLYSIS [None]
  - VITAMIN B12 DEFICIENCY [None]
